FAERS Safety Report 9406919 (Version 1)
Quarter: 2013Q3

REPORT INFORMATION
  Report Type: Spontaneous
  Country: US (occurrence: US)
  Receive Date: 20130718
  Receipt Date: 20130718
  Transmission Date: 20140515
  Serious: No
  Sender: FDA-Public Use
  Company Number: US-PFIZER INC-2013208636

PATIENT
  Age: 3 Year
  Sex: Female
  Weight: 12.25 kg

DRUGS (4)
  1. NEURONTIN [Suspect]
     Indication: SPINAL PAIN
     Dosage: UNK, 2X/DAY
     Route: 048
     Dates: start: 201307
  2. NEURONTIN [Suspect]
     Indication: NEURALGIA
  3. MOTRIN [Concomitant]
     Indication: SPINAL PAIN
     Dosage: 1 MG, 2X/DAY
  4. MOTRIN [Concomitant]
     Indication: NEURALGIA

REACTIONS (3)
  - Off label use [Unknown]
  - Product taste abnormal [Unknown]
  - Dysgeusia [Unknown]
